FAERS Safety Report 17788065 (Version 2)
Quarter: 2020Q2

REPORT INFORMATION
  Report Type: Spontaneous
  Country: GB (occurrence: GB)
  Receive Date: 20200514
  Receipt Date: 20200526
  Transmission Date: 20200714
  Serious: Yes (Hospitalization, Other)
  Sender: FDA-Public Use
  Company Number: GB-MYLANLABS-2020M1046437

PATIENT
  Age: 40 Year
  Sex: Male

DRUGS (3)
  1. TRAMADOL. [Suspect]
     Active Substance: TRAMADOL
     Dosage: 4000 MILLIGRAM
  2. ALCOHOL. [Suspect]
     Active Substance: ALCOHOL
     Indication: PRODUCT USED FOR UNKNOWN INDICATION
     Dosage: LARGE AMOUNT
  3. TRAMADOL. [Suspect]
     Active Substance: TRAMADOL
     Indication: PRODUCT USED FOR UNKNOWN INDICATION
     Dosage: 40 TABLET, UNK (STRENGTH 100MG)
     Route: 065

REACTIONS (7)
  - Somnolence [Unknown]
  - Suspected suicide attempt [Unknown]
  - Contusion [Unknown]
  - Erythema [Unknown]
  - Rhabdomyolysis [Unknown]
  - Loss of consciousness [Unknown]
  - Overdose [Unknown]
